FAERS Safety Report 17732983 (Version 1)
Quarter: 2020Q2

REPORT INFORMATION
  Report Type: Report from Study
  Country: US (occurrence: US)
  Receive Date: 20200501
  Receipt Date: 20200501
  Transmission Date: 20200714
  Serious: Yes (Other)
  Sender: FDA-Public Use
  Company Number: US-ROCHE-1900326

PATIENT
  Sex: Female
  Weight: 87.17 kg

DRUGS (6)
  1. FERROUS SULPHATE [FERROUS SULFATE] [Concomitant]
     Active Substance: FERROUS SULFATE
  2. NAPROXEN. [Concomitant]
     Active Substance: NAPROXEN
  3. ACTEMRA [Suspect]
     Active Substance: TOCILIZUMAB
     Indication: RHEUMATOID ARTHRITIS
     Route: 058
  4. ACTEMRA [Suspect]
     Active Substance: TOCILIZUMAB
     Indication: MUSCULOSKELETAL PAIN
  5. ARAVA [Concomitant]
     Active Substance: LEFLUNOMIDE
  6. PREDNISONE. [Concomitant]
     Active Substance: PREDNISONE

REACTIONS (4)
  - Influenza [Unknown]
  - Fatigue [Unknown]
  - Myalgia [Unknown]
  - Immune-mediated adverse reaction [Unknown]
